FAERS Safety Report 15058264 (Version 2)
Quarter: 2018Q3

REPORT INFORMATION
  Report Type: Spontaneous
  Country: US (occurrence: US)
  Receive Date: 20180625
  Receipt Date: 20180926
  Transmission Date: 20181010
  Serious: No
  Sender: FDA-Public Use
  Company Number: US-PFIZER INC-2018083171

PATIENT
  Age: 11 Year
  Sex: Male
  Weight: 50.8 kg

DRUGS (3)
  1. GENOTROPIN [Suspect]
     Active Substance: SOMATROPIN
     Dosage: 2.6 MG, 1X/DAY (AT BEDTIME)
     Route: 058
  2. GENOTROPIN [Suspect]
     Active Substance: SOMATROPIN
     Dosage: 2.6 MG, (2.6 MG INJECTION PER NIGHT, 6 NIGHTS A WEEK)
  3. GENOTROPIN [Suspect]
     Active Substance: SOMATROPIN
     Indication: GROWTH RETARDATION
     Dosage: 2.6 MG, (2.6 MG DAYS PER WEEK)
     Dates: start: 201608

REACTIONS (5)
  - Drug prescribing error [Unknown]
  - Drug dose omission [Unknown]
  - Device issue [Unknown]
  - Nasal congestion [Unknown]
  - Expired device used [Unknown]

NARRATIVE: CASE EVENT DATE: 20180917
